FAERS Safety Report 13757818 (Version 3)
Quarter: 2019Q2

REPORT INFORMATION
  Report Type: Spontaneous
  Country: FR (occurrence: FR)
  Receive Date: 20170717
  Receipt Date: 20190405
  Transmission Date: 20190711
  Serious: Yes (Death, Life-Threatening, Other)
  Sender: FDA-Public Use
  Company Number: FR-ACCORD-053593

PATIENT
  Age: 68 Year
  Sex: Male

DRUGS (4)
  1. GEMCITABINE/GEMCITABINE HYDROCHLORIDE [Suspect]
     Active Substance: GEMCITABINE\GEMCITABINE HYDROCHLORIDE
     Indication: CUTANEOUS T-CELL LYMPHOMA
  2. TACROLIMUS. [Suspect]
     Active Substance: TACROLIMUS
     Indication: HEART TRANSPLANT
     Dosage: 1.5 MG, TWICE DAILY (2 PER DAY)
     Route: 065
     Dates: start: 1995
  3. PREDNISOLONE. [Suspect]
     Active Substance: PREDNISOLONE
     Indication: HEART TRANSPLANT
     Route: 065
  4. MYCOPHENOLIC ACID. [Suspect]
     Active Substance: MYCOPHENOLIC ACID
     Indication: HEART TRANSPLANT
     Route: 065

REACTIONS (4)
  - Staphylococcal bacteraemia [Fatal]
  - Cutaneous T-cell lymphoma [Recovering/Resolving]
  - Chronic kidney disease [Unknown]
  - Septic shock [Fatal]

NARRATIVE: CASE EVENT DATE: 201510
